FAERS Safety Report 13360266 (Version 2)
Quarter: 2017Q2

REPORT INFORMATION
  Report Type: Spontaneous
  Country: FR (occurrence: FR)
  Receive Date: 20170322
  Receipt Date: 20170420
  Transmission Date: 20170830
  Serious: Yes (Other)
  Sender: FDA-Public Use
  Company Number: FR-UCBSA-2017010363

PATIENT
  Age: 44 Year
  Sex: Female

DRUGS (16)
  1. KEPPRA [Suspect]
     Active Substance: LEVETIRACETAM
     Indication: DRUG PRESCRIBING ERROR
     Dosage: UNK
     Route: 048
     Dates: start: 20170124, end: 20170223
  2. LAMICTAL [Suspect]
     Active Substance: LAMOTRIGINE
     Indication: DRUG PRESCRIBING ERROR
     Dosage: UNK
     Route: 048
     Dates: start: 20170124, end: 20170223
  3. ESOMEPRAZOLE [Concomitant]
     Active Substance: ESOMEPRAZOLE
     Indication: PRODUCT USED FOR UNKNOWN INDICATION
     Dosage: UNK
  4. KARDEGIC [Concomitant]
     Active Substance: ASPIRIN LYSINE
     Indication: PRODUCT USED FOR UNKNOWN INDICATION
     Dosage: UNK
  5. OXYCONTIN [Concomitant]
     Active Substance: OXYCODONE HYDROCHLORIDE
     Indication: PRODUCT USED FOR UNKNOWN INDICATION
  6. TRACLEER [Suspect]
     Active Substance: BOSENTAN
     Indication: PRODUCT USED FOR UNKNOWN INDICATION
     Dosage: UNK
     Dates: start: 201610, end: 201611
  7. TAHOR [Concomitant]
     Active Substance: ATORVASTATIN CALCIUM
     Indication: PRODUCT USED FOR UNKNOWN INDICATION
     Dosage: STRENGTH: 10 MG, UNK
  8. PARACETAMOL [Concomitant]
     Active Substance: ACETAMINOPHEN
     Indication: PRODUCT USED FOR UNKNOWN INDICATION
     Dosage: UNK
  9. ADEPAL [Suspect]
     Active Substance: ETHINYL ESTRADIOL\LEVONORGESTREL
     Indication: DRUG PRESCRIBING ERROR
     Dosage: UNK
     Route: 048
     Dates: start: 20170124, end: 2017
  10. ILOMEDINE [Suspect]
     Active Substance: ILOPROST TROMETHAMINE
     Indication: PRODUCT USED FOR UNKNOWN INDICATION
     Dosage: STRENGTH: 0.1MG/1ML
     Dates: start: 201701
  11. AMLODIPINE [Concomitant]
     Active Substance: AMLODIPINE BESYLATE
     Indication: PRODUCT USED FOR UNKNOWN INDICATION
     Dosage: UNK
  12. TARDYFERON B9 [Concomitant]
     Active Substance: FERROUS SULFATE\FOLIC ACID
     Indication: PRODUCT USED FOR UNKNOWN INDICATION
     Dosage: UNK
  13. TRACLEER [Suspect]
     Active Substance: BOSENTAN
     Dosage: STRENGTH: 62.5 MG, 2 DF, ONCE DAILY (QD)
     Route: 048
     Dates: start: 20170130, end: 20170223
  14. CAPTOPRIL. [Suspect]
     Active Substance: CAPTOPRIL
     Indication: PRODUCT USED FOR UNKNOWN INDICATION
     Dosage: UNK
     Dates: start: 201610, end: 201611
  15. CAPTOPRIL. [Suspect]
     Active Substance: CAPTOPRIL
     Dosage: 25 MG, 2X/DAY (BID)
     Route: 048
     Dates: start: 201701, end: 20170223
  16. SPECIAFOLDINE [Concomitant]
     Active Substance: FOLIC ACID
     Indication: PRODUCT USED FOR UNKNOWN INDICATION
     Dosage: UNK

REACTIONS (4)
  - Rash erythematous [Recovering/Resolving]
  - Periorbital oedema [Recovered/Resolved]
  - Cheilitis [Recovered/Resolved]
  - Drug prescribing error [Unknown]

NARRATIVE: CASE EVENT DATE: 20170124
